FAERS Safety Report 5928331-4 (Version None)
Quarter: 2008Q4

REPORT INFORMATION
  Report Type: 
  Country: None (occurrence: None)
  Receive Date: 20081021
  Receipt Date: 20081010
  Transmission Date: 20090506
  Serious: Yes (Other)
  Sender: FDA-Public Use
  Company Number: RENA-1000264

PATIENT
  Age: 61 Year
  Sex: Female

DRUGS (2)
  1. RENAGEL [Suspect]
     Indication: HYPERPHOSPHATAEMIA
  2. KEXELATE (SODIUM POLYSTYRENE SULFONATE) [Concomitant]

REACTIONS (3)
  - FACIAL SPASM [None]
  - HYPOCALCAEMIA [None]
  - TETANY [None]
